APPROVED DRUG PRODUCT: BILOPAQUE
Active Ingredient: TYROPANOATE SODIUM
Strength: 750MG
Dosage Form/Route: CAPSULE;ORAL
Application: N013731 | Product #001
Applicant: GE HEALTHCARE
Approved: Approved Prior to Jan 1, 1982 | RLD: No | RS: No | Type: DISCN